FAERS Safety Report 4796974-X (Version None)
Quarter: 2005Q4

REPORT INFORMATION
  Report Type: 
  Country: None (occurrence: None)
  Receive Date: 20051011
  Receipt Date: 20051011
  Transmission Date: 20060501
  Serious: Yes (Other)
  Sender: FDA-Public Use
  Company Number: None

PATIENT
  Age: 29 Year
  Sex: Female
  Weight: 68.0396 kg

DRUGS (1)
  1. IMITREX [Suspect]
     Indication: MIGRAINE
     Dosage: 6MG SQ
     Route: 058

REACTIONS (4)
  - BURNING SENSATION [None]
  - CHEST PAIN [None]
  - PHARYNGOLARYNGEAL PAIN [None]
  - VOMITING [None]
